FAERS Safety Report 7234336-6 (Version None)
Quarter: 2010Q4

REPORT INFORMATION
  Report Type: 
  Country: None (occurrence: None)
  Receive Date: 20101130
  Receipt Date: 20090827
  Transmission Date: 20110411
  Serious: Yes (Hospitalization, Other)
  Sender: FDA-Public Use
  Company Number: 2009-194910-NL

PATIENT
  Age: 41 Year
  Sex: Female
  Weight: 71.6683 kg

DRUGS (10)
  1. NUVARING [Suspect]
     Indication: CONTRACEPTION
     Dosage: 1 DF
     Dates: start: 20070601, end: 20070726
  2. EPINEPHRINE [Concomitant]
  3. DECADRON [Concomitant]
  4. PEPCID [Concomitant]
  5. PREDNISONE [Concomitant]
  6. SINGULAIR [Concomitant]
  7. NEXIUM [Concomitant]
  8. NASONEX [Concomitant]
  9. BENADRYL [Concomitant]
  10. ATARAX [Concomitant]

REACTIONS (4)
  - HYPERSENSITIVITY [None]
  - IRON DEFICIENCY ANAEMIA [None]
  - MIGRAINE [None]
  - PULMONARY EMBOLISM [None]
